FAERS Safety Report 8025271 (Version 3)
Quarter: 2013Q1

REPORT INFORMATION
  Report Type: Report from Study
  Country: FR (occurrence: FR)
  Receive Date: 20110707
  Receipt Date: 20130305
  Transmission Date: 20140127
  Serious: Yes (Hospitalization)
  Sender: FDA-Public Use
  Company Number: FR-PFIZER INC-2011104084

PATIENT
  Age: 34 Year
  Sex: Male

DRUGS (3)
  1. RAPAMUNE [Suspect]
     Dosage: 3 MG, 1X/DAY
     Route: 048
  2. SOLU-MEDROL [Suspect]
     Dosage: UNK
  3. CELLCEPT [Suspect]
     Dosage: 1 G, 1X/DAY
     Route: 048

REACTIONS (10)
  - Transplant rejection [Not Recovered/Not Resolved]
  - Klebsiella infection [Not Recovered/Not Resolved]
  - Small intestinal obstruction [Recovered/Resolved]
  - Duodenal fistula [Recovered/Resolved]
  - Pneumoperitoneum [Recovered/Resolved]
  - Peritonitis pneumococcal [Recovered/Resolved]
  - Peritoneal haemorrhage [Recovered/Resolved]
  - Respiratory distress [Recovered/Resolved]
  - Shock haemorrhagic [Recovered/Resolved]
  - Ascites [Recovered/Resolved]
